FAERS Safety Report 7004950-1 (Version None)
Quarter: 2010Q3

REPORT INFORMATION
  Report Type: 
  Country: None (occurrence: None)
  Receive Date: 20100921
  Receipt Date: 20100920
  Transmission Date: 20110219
  Serious: Yes (Hospitalization, Other)
  Sender: FDA-Public Use
  Company Number: US-BRISTOL-MYERS SQUIBB COMPANY-15107410

PATIENT
  Age: 69 Year
  Sex: Male

DRUGS (29)
  1. COUMADIN [Suspect]
  2. ASPIRIN [Suspect]
  3. PLAVIX [Suspect]
     Indication: CORONARY ARTERY DISEASE
     Dosage: 150 MILLIGRAM(S) ;TWICE A DAY;ORAL. LAST DOSE ON 03MAY2010.
     Route: 048
     Dates: start: 20090101
  4. PLAVIX [Suspect]
     Indication: STENT PLACEMENT
     Dosage: 150 MILLIGRAM(S) ;TWICE A DAY;ORAL. LAST DOSE ON 03MAY2010.
     Route: 048
     Dates: start: 20090101
  5. COREG [Concomitant]
  6. SINGULAIR [Concomitant]
  7. PROTONIX [Concomitant]
  8. PERCOCET [Concomitant]
     Indication: PAIN
  9. LEVAQUIN [Concomitant]
     Indication: OSTEOMYELITIS
  10. BENADRYL [Concomitant]
  11. MULTI-VITAMINS [Concomitant]
  12. FOLIC ACID [Concomitant]
  13. VITAMIN B SUBSTANCES [Concomitant]
  14. SPIRONOLACTONE [Concomitant]
  15. ADVAIR DISKUS 100/50 [Concomitant]
  16. LIPITOR [Concomitant]
  17. NAPROXEN [Concomitant]
  18. ALLEGRA D 24 HOUR [Concomitant]
  19. IPRATROPIUM + SALBUTAMOL [Concomitant]
  20. AMINOACETIC ACID [Concomitant]
  21. BENZALKONIUM CHLORIDE [Concomitant]
  22. OXYMETAZOLINE HCL [Concomitant]
  23. PHENYLMERCURIC ACETATE [Concomitant]
  24. SORBITOL [Concomitant]
  25. ACETATED RINGERS [Concomitant]
  26. LOSARTAN POTASSIUM [Concomitant]
  27. NITROGLYCERIN [Concomitant]
  28. SIMVASTATIN [Concomitant]
  29. BUMETANIDE [Concomitant]

REACTIONS (7)
  - ARTERIAL THROMBOSIS LIMB [None]
  - HYPOTENSION [None]
  - OVERDOSE [None]
  - PERIPHERAL ISCHAEMIA [None]
  - PNEUMONIA STREPTOCOCCAL [None]
  - SKIN ULCER [None]
  - THROMBOSIS IN DEVICE [None]
